FAERS Safety Report 18936819 (Version 3)
Quarter: 2021Q2

REPORT INFORMATION
  Report Type: Spontaneous
  Country: CA (occurrence: CA)
  Receive Date: 20210224
  Receipt Date: 20210407
  Transmission Date: 20210717
  Serious: Yes (Other)
  Sender: FDA-Public Use
  Company Number: CA-PFIZER INC-2021161797

PATIENT
  Age: 11 Year
  Sex: Female

DRUGS (4)
  1. INFLIXIMAB [Concomitant]
     Active Substance: INFLIXIMAB
     Dosage: UNK
  2. GEBAUER^S PAIN EASE [Concomitant]
     Dosage: UNK
  3. BENADRYL [Concomitant]
     Active Substance: DIPHENHYDRAMINE HYDROCHLORIDE
     Dosage: UNK
  4. SOLU?CORTEF [Suspect]
     Active Substance: HYDROCORTISONE SODIUM SUCCINATE
     Dosage: 15 ML
     Route: 030
     Dates: start: 201802

REACTIONS (5)
  - Drug hypersensitivity [Unknown]
  - Urticaria [Unknown]
  - Swelling face [Unknown]
  - Suspected product contamination [Unknown]
  - Abdominal pain [Unknown]
